FAERS Safety Report 11590318 (Version 1)
Quarter: 2015Q4

REPORT INFORMATION
  Report Type: Spontaneous
  Country: BR (occurrence: BR)
  Receive Date: 20151002
  Receipt Date: 20151002
  Transmission Date: 20160304
  Serious: Yes (Other)
  Sender: FDA-Public Use
  Company Number: BR-PFIZER INC-2015329326

PATIENT
  Age: 53 Year
  Sex: Female
  Weight: 103 kg

DRUGS (4)
  1. TOPERMA [Concomitant]
     Active Substance: LIDOCAINE
     Indication: PAIN
     Dosage: UNK, EVERY 12 HOURS
  2. OXYCONTIN [Concomitant]
     Active Substance: OXYCODONE HYDROCHLORIDE
     Indication: PAIN
     Dosage: UNK, EVERY 12 HOURS
     Dates: start: 2004
  3. TRAMAL [Concomitant]
     Active Substance: TRAMADOL
     Indication: PAIN
     Dosage: 1 DF, EVERY 12 HOUS
     Dates: end: 201508
  4. LYRICA [Suspect]
     Active Substance: PREGABALIN
     Indication: PAIN
     Dosage: 75 MG, EVERY 12 HOURS
     Route: 048
     Dates: start: 2005

REACTIONS (6)
  - Synovial cyst [Unknown]
  - Gait disturbance [Not Recovered/Not Resolved]
  - Condition aggravated [Not Recovered/Not Resolved]
  - Bed rest [Not Recovered/Not Resolved]
  - Intervertebral disc protrusion [Unknown]
  - Pain [Not Recovered/Not Resolved]
